FAERS Safety Report 7653075 (Version 4)
Quarter: 2013Q2

REPORT INFORMATION
  Report Type: Spontaneous
  Country: US (occurrence: US)
  Receive Date: 20101102
  Receipt Date: 20130408
  Transmission Date: 20140414
  Serious: Yes (Hospitalization)
  Sender: FDA-Public Use
  Company Number: US-BAYER-201038842NA

PATIENT
  Age: 19 Year
  Sex: Female
  Weight: 72.97 kg

DRUGS (8)
  1. OCELLA [Suspect]
     Indication: PREMENSTRUAL SYNDROME
  2. OCELLA [Suspect]
     Indication: ORAL CONTRACEPTION
  3. YASMIN [Suspect]
     Indication: ORAL CONTRACEPTION
  4. YASMIN [Suspect]
     Indication: PREMENSTRUAL SYNDROME
  5. SEROQUEL [Concomitant]
     Indication: ANXIETY
     Dosage: UNK
     Dates: start: 200806, end: 200809
  6. BUSPIRONE HYDROCHLORIDE [Concomitant]
     Indication: PRODUCT USED FOR UNKNOWN INDICATION
     Dosage: 15 MG, UNK
     Dates: start: 200806
  7. SUBOXONE [Concomitant]
     Indication: PRODUCT USED FOR UNKNOWN INDICATION
     Dosage: 8 MG, UNK
     Dates: start: 200806
  8. SUBOXONE [Concomitant]
     Indication: PRODUCT USED FOR UNKNOWN INDICATION
     Dosage: 2 MG, UNK
     Dates: start: 200806

REACTIONS (11)
  - Gallbladder disorder [None]
  - Cholecystitis chronic [None]
  - Pancreatitis [None]
  - Bile duct stone [None]
  - Injury [Unknown]
  - Pain [None]
  - Biliary colic [None]
  - Pancreatitis chronic [None]
  - Abdominal pain [None]
  - Nausea [None]
  - Off label use [None]
